FAERS Safety Report 14925521 (Version 1)
Quarter: 2018Q2

REPORT INFORMATION
  Report Type: Spontaneous
  Country: SE (occurrence: SE)
  Receive Date: 20180522
  Receipt Date: 20180522
  Transmission Date: 20180711
  Serious: Yes (Other)
  Sender: FDA-Public Use
  Company Number: SE-NOVOPROD-601341

PATIENT
  Age: 50 Year
  Sex: Female
  Weight: 73 kg

DRUGS (1)
  1. VAGIFEM [Suspect]
     Active Substance: ESTRADIOL
     Indication: MUCOSAL DRYNESS
     Dosage: ONE TABLET PER DAY IN TWO WEEKS, THEREAFTER TWO TABLETS PER WEEK
     Route: 067
     Dates: start: 201804

REACTIONS (1)
  - Arrhythmia [Recovered/Resolved]

NARRATIVE: CASE EVENT DATE: 20180424
